FAERS Safety Report 24590011 (Version 2)
Quarter: 2024Q4

REPORT INFORMATION
  Report Type: Spontaneous
  Country: US (occurrence: US)
  Receive Date: 20241107
  Receipt Date: 20241111
  Transmission Date: 20250114
  Serious: No
  Sender: PFIZER
  Company Number: US-PFIZER INC-202400295315

PATIENT

DRUGS (2)
  1. ENCORAFENIB [Suspect]
     Active Substance: ENCORAFENIB
  2. BINIMETINIB [Suspect]
     Active Substance: BINIMETINIB

REACTIONS (2)
  - Ocular toxicity [Unknown]
  - Vitreous floaters [Unknown]
